FAERS Safety Report 9205017 (Version 2)
Quarter: 2013Q2

REPORT INFORMATION
  Report Type: Spontaneous
  Country: AU (occurrence: AU)
  Receive Date: 20130402
  Receipt Date: 20130408
  Transmission Date: 20140414
  Serious: Yes (Life-Threatening, Hospitalization, Other)
  Sender: FDA-Public Use
  Company Number: AU-BAYER-2013-037739

PATIENT
  Age: 72 Year
  Sex: Male
  Weight: 96 kg

DRUGS (14)
  1. BAYER ASPIRIN [Suspect]
     Indication: MYOCARDIAL ISCHAEMIA
  2. BAYER ASPIRIN [Suspect]
     Indication: MYOCARDIAL ISCHAEMIA
     Dosage: UNK
     Dates: start: 20120123
  3. WARFARIN [Interacting]
     Indication: ATRIAL FIBRILLATION
  4. CLOPIDOGREL [Interacting]
     Indication: MYOCARDIAL ISCHAEMIA
  5. AZTREONAM LYSINE [Suspect]
     Indication: BRONCHIECTASIS
     Dosage: 75 MG, TID
     Route: 055
     Dates: start: 20111223, end: 20120115
  6. MOXIFLOXACIN [Suspect]
     Indication: INFECTIVE EXACERBATION OF BRONCHIECTASIS
     Dosage: UNK
     Route: 048
     Dates: start: 20111229
  7. AZITHROMYCIN [Suspect]
     Indication: INFECTIVE EXACERBATION OF BRONCHIECTASIS
     Dosage: UNK
     Route: 048
     Dates: start: 20120109
  8. AZITHROMYCIN [Suspect]
     Indication: INFECTIVE EXACERBATION OF BRONCHIECTASIS
     Dosage: UNK
     Route: 042
     Dates: start: 20120111
  9. SPIRIVA [Concomitant]
     Dosage: UNK
  10. SERETIDE [Concomitant]
     Dosage: UNK
  11. VENTOLIN [Concomitant]
     Dosage: UNK
  12. ATORVASTATIN [Concomitant]
     Dosage: UNK
  13. DILTIAZEM [Concomitant]
     Dosage: UNK
  14. CANDESARTAN [Concomitant]
     Dosage: UNK

REACTIONS (23)
  - Infective exacerbation of bronchiectasis [Recovered/Resolved]
  - Sputum increased [Recovered/Resolved]
  - Sputum discoloured [Recovered/Resolved]
  - Pulmonary congestion [Recovered/Resolved]
  - Dyspnoea [Recovered/Resolved]
  - Joint swelling [Recovered/Resolved]
  - Fatigue [Recovered/Resolved]
  - Chest pain [Recovered/Resolved]
  - Haemorrhage intracranial [Recovered/Resolved with Sequelae]
  - Nausea [Recovered/Resolved with Sequelae]
  - Vomiting [Recovered/Resolved with Sequelae]
  - Headache [Recovered/Resolved with Sequelae]
  - Photophobia [Recovered/Resolved with Sequelae]
  - Somnolence [Recovered/Resolved with Sequelae]
  - Confusional state [Recovered/Resolved with Sequelae]
  - Convulsion [None]
  - Lower gastrointestinal haemorrhage [None]
  - Subdural haematoma [Recovered/Resolved]
  - Hemiplegia [Recovered/Resolved]
  - Cognitive disorder [None]
  - Balance disorder [None]
  - Labelled drug-drug interaction medication error [None]
  - Drug ineffective [None]
